FAERS Safety Report 9526943 (Version 2)
Quarter: 2013Q3

REPORT INFORMATION
  Report Type: Report from Study
  Country: AT (occurrence: AT)
  Receive Date: 20130916
  Receipt Date: 20130916
  Transmission Date: 20140515
  Serious: Yes (Death, Hospitalization)
  Sender: FDA-Public Use
  Company Number: AT-CELGENEUS-009-21660-13042724

PATIENT
  Age: 47 Year
  Sex: Female
  Weight: 58.4 kg

DRUGS (9)
  1. ABRAXANE [Suspect]
     Indication: BREAST CANCER METASTATIC
     Route: 065
     Dates: start: 20130204
  2. ABRAXANE [Suspect]
     Route: 065
     Dates: start: 20130429, end: 20130502
  3. ZANTAC [Concomitant]
     Indication: INFUSION
     Route: 065
  4. DIBONDRIN [Concomitant]
     Indication: INFUSION
     Route: 065
  5. AVASTIN [Concomitant]
     Indication: BREAST CANCER METASTATIC
     Dosage: 600 MILLIGRAM
     Route: 065
  6. CORTICOSTEROIDS [Concomitant]
     Indication: INFUSION
     Route: 065
  7. NEXIUM [Concomitant]
     Indication: INFUSION
     Route: 065
  8. 5HT3 ANTAGONIST [Concomitant]
     Indication: INFUSION
     Route: 065
  9. ZOMETA [Concomitant]
     Indication: INFUSION
     Route: 065

REACTIONS (7)
  - Hepatic failure [Fatal]
  - Disease progression [Fatal]
  - Pain in extremity [Recovered/Resolved]
  - Flank pain [Recovered/Resolved]
  - Nasal dryness [Not Recovered/Not Resolved]
  - Constipation [Not Recovered/Not Resolved]
  - Breast cancer [Unknown]
